FAERS Safety Report 6611795-0 (Version None)
Quarter: 2010Q1

REPORT INFORMATION
  Report Type: 
  Country: None (occurrence: None)
  Receive Date: 20100303
  Receipt Date: 20100224
  Transmission Date: 20100710
  Serious: Yes (Other)
  Sender: FDA-Public Use
  Company Number: FR-ROCHE-682225

PATIENT
  Age: 60 Year
  Sex: Female
  Weight: 65 kg

DRUGS (4)
  1. BONIVA [Suspect]
     Indication: OSTEOPOROSIS
     Route: 048
     Dates: start: 20080601, end: 20100101
  2. OROCAL D3 [Concomitant]
  3. FORADIL [Concomitant]
  4. SPIRIVA [Concomitant]

REACTIONS (1)
  - DEEP VEIN THROMBOSIS [None]
